FAERS Safety Report 5887971-1 (Version None)
Quarter: 2008Q3

REPORT INFORMATION
  Report Type: 
  Country: None (occurrence: None)
  Receive Date: 20080918
  Receipt Date: 20080911
  Transmission Date: 20090109
  Serious: Yes (Hospitalization)
  Sender: FDA-Public Use
  Company Number: B0537217A

PATIENT
  Age: 73 Year
  Sex: Female

DRUGS (10)
  1. LANOXIN [Suspect]
     Dosage: .25MG PER DAY
     Route: 048
     Dates: start: 20080501, end: 20080605
  2. AMIODARONE HCL [Concomitant]
     Indication: ATRIAL FIBRILLATION
     Route: 048
  3. ALLOPURINOL [Concomitant]
     Dosage: 300MG PER DAY
     Route: 048
  4. IPRATROPIUM BROMIDE [Concomitant]
  5. DILTIAZEM HYDROCHLORIDE [Concomitant]
     Dosage: 200MG PER DAY
     Route: 048
  6. FERROUS SULFATE TAB [Concomitant]
     Dosage: 525MG PER DAY
     Route: 048
  7. FUROSEMIDE [Concomitant]
     Dosage: 40MG PER DAY
     Route: 048
  8. OMEPRAZOLE [Concomitant]
     Dosage: 20MG PER DAY
     Route: 048
  9. SIMVASTATIN [Concomitant]
     Dosage: 20MG PER DAY
     Route: 048
  10. NITROGLYCERIN [Concomitant]
     Dosage: 10MG PER DAY
     Route: 062

REACTIONS (15)
  - ASTHENIA [None]
  - CARDIAC FAILURE CONGESTIVE [None]
  - CARDIAC MURMUR [None]
  - DRY SKIN [None]
  - DYSPNOEA [None]
  - NAUSEA [None]
  - OEDEMA [None]
  - OEDEMA PERIPHERAL [None]
  - PLEURAL EFFUSION [None]
  - PRODUCTIVE COUGH [None]
  - RENAL FAILURE [None]
  - RESPIRATORY RATE INCREASED [None]
  - THERAPEUTIC AGENT TOXICITY [None]
  - VOMITING [None]
  - WHEEZING [None]
